FAERS Safety Report 10441158 (Version 1)
Quarter: 2014Q3

REPORT INFORMATION
  Report Type: Spontaneous
  Country: US (occurrence: None)
  Receive Date: 20140908
  Receipt Date: 20140908
  Transmission Date: 20150326
  Serious: Yes (Hospitalization)
  Sender: FDA-Public Use
  Company Number: None

PATIENT
  Age: 53 Year
  Sex: Male
  Weight: 101.2 kg

DRUGS (1)
  1. IBUPROFEN. [Suspect]
     Active Substance: IBUPROFEN
     Indication: PAIN
     Route: 048
     Dates: start: 20140101, end: 20140711

REACTIONS (4)
  - Renal impairment [None]
  - Blood urea increased [None]
  - Chest pain [None]
  - Blood creatinine increased [None]

NARRATIVE: CASE EVENT DATE: 20140711
